FAERS Safety Report 11688524 (Version 1)
Quarter: 2015Q4

REPORT INFORMATION
  Report Type: Report from Study
  Country: IN (occurrence: IN)
  Receive Date: 20151101
  Receipt Date: 20151101
  Transmission Date: 20160304
  Serious: Yes (Death)
  Sender: FDA-Public Use
  Company Number: IN-ROCHE-1653417

PATIENT
  Age: 64 Year
  Sex: Male

DRUGS (11)
  1. SILODOSIN [Concomitant]
     Active Substance: SILODOSIN
     Route: 048
     Dates: start: 20150220
  2. MECOBAL [Concomitant]
     Route: 048
     Dates: start: 20150220
  3. INSULIN [Concomitant]
     Active Substance: INSULIN NOS
     Route: 065
     Dates: start: 20150220
  4. TACROLIMUS. [Concomitant]
     Active Substance: TACROLIMUS
     Dosage: TABLETS 2MG IN MORNING AND 1MG IN EVENING
     Route: 048
     Dates: start: 20150220
  5. CELLCEPT [Suspect]
     Active Substance: MYCOPHENOLATE MOFETIL\MYCOPHENOLATE MOFETIL HYDROCHLORIDE
     Indication: RENAL TRANSPLANT
     Route: 048
     Dates: start: 20150220
  6. WYSOLONE [Concomitant]
     Active Substance: PREDNISOLONE
     Route: 048
     Dates: start: 20150220
  7. PANTOPRAZOLE [Concomitant]
     Active Substance: PANTOPRAZOLE SODIUM
     Route: 048
     Dates: start: 20150220
  8. VALGANCICLOVIR [Concomitant]
     Active Substance: VALGANCICLOVIR
     Route: 048
     Dates: start: 20150220
  9. CLOTRIMAZOLE. [Concomitant]
     Active Substance: CLOTRIMAZOLE
     Dosage: 20 DROPS THREE TIMES A DAY
     Route: 065
     Dates: start: 20150220
  10. REPAGLINIDE. [Concomitant]
     Active Substance: REPAGLINIDE
     Route: 048
     Dates: start: 20150220
  11. SEPTRA DS [Concomitant]
     Active Substance: SULFAMETHOXAZOLE\TRIMETHOPRIM
     Dosage: HALF A TABLET ORALLY ONCE A DAY
     Route: 048
     Dates: start: 20150220

REACTIONS (1)
  - Death [Fatal]
